FAERS Safety Report 6421675-1 (Version None)
Quarter: 2009Q4

REPORT INFORMATION
  Report Type: 
  Country: None (occurrence: None)
  Receive Date: 20091029
  Receipt Date: 20091029
  Transmission Date: 20100525
  Serious: Yes (Other)
  Sender: FDA-Public Use
  Company Number: None

PATIENT
  Age: 37 Month
  Sex: Female
  Weight: 14.9687 kg

DRUGS (2)
  1. TAMIFLU [Suspect]
     Indication: H1N1 INFLUENZA
     Dosage: 45 MG BID PO
     Route: 048
     Dates: start: 20091019, end: 20091023
  2. TAMIFLU [Suspect]
     Indication: INFLUENZA
     Dosage: 45 MG BID PO
     Route: 048
     Dates: start: 20091019, end: 20091023

REACTIONS (4)
  - NERVOUSNESS [None]
  - PSYCHOMOTOR HYPERACTIVITY [None]
  - SELF INJURIOUS BEHAVIOUR [None]
  - SLEEP DISORDER [None]
